FAERS Safety Report 9536993 (Version 1)
Quarter: 2013Q3

REPORT INFORMATION
  Report Type: Spontaneous
  Country: US (occurrence: None)
  Receive Date: 20130918
  Receipt Date: 20130918
  Transmission Date: 20140515
  Serious: No
  Sender: FDA-Public Use
  Company Number: None

PATIENT
  Age: 29 Year
  Sex: Female

DRUGS (1)
  1. SOLU-MEDROL [Suspect]
     Indication: RELAPSING-REMITTING MULTIPLE SCLEROSIS
     Dosage: USED 4 TIMES IN 2011

REACTIONS (7)
  - Swelling [None]
  - Fluid retention [None]
  - Irritability [None]
  - Mood swings [None]
  - Erythema [None]
  - Headache [None]
  - Blood glucose increased [None]
